FAERS Safety Report 4731354-4 (Version None)
Quarter: 2005Q3

REPORT INFORMATION
  Report Type: 
  Country: None (occurrence: None)
  Receive Date: 20050801
  Receipt Date: 20050801
  Transmission Date: 20060218
  Serious: Yes (Life-Threatening, Hospitalization)
  Sender: FDA-Public Use
  Company Number: None

PATIENT
  Age: 91 Year
  Sex: Female
  Weight: 59 kg

DRUGS (3)
  1. DIGOXIN [Suspect]
     Indication: ATRIAL FIBRILLATION
     Dosage: 0.125MG DAILY  ORAL
     Route: 048
     Dates: start: 20050101, end: 20050218
  2. TOPROL-XL [Suspect]
     Indication: CARDIAC FAILURE CONGESTIVE
     Dosage: 50MG  DAILY  ORAL
     Route: 048
     Dates: start: 20050101, end: 20050218
  3. TOPROL-XL [Suspect]
     Indication: HYPERTENSION
     Dosage: 50MG  DAILY  ORAL
     Route: 048
     Dates: start: 20050101, end: 20050218

REACTIONS (2)
  - HEART RATE DECREASED [None]
  - LABORATORY TEST ABNORMAL [None]
